FAERS Safety Report 8211141-5 (Version None)
Quarter: 2012Q1

REPORT INFORMATION
  Report Type: 
  Country: None (occurrence: None)
  Receive Date: 20120315
  Receipt Date: 20120221
  Transmission Date: 20120608
  Serious: Yes (Death, Hospitalization)
  Sender: FDA-Public Use
  Company Number: FR-B.I. PHARMACEUTICALS,INC./RIDGEFIELD-2012-FF-00222FF

PATIENT
  Sex: Male

DRUGS (6)
  1. THEOPHYLLINE [Suspect]
     Dosage: 800 MG
     Route: 048
     Dates: end: 20120105
  2. IMMUNE GLOBULIN NOS [Suspect]
     Route: 042
     Dates: end: 20111228
  3. TRANDOLAPRIL [Suspect]
     Route: 048
     Dates: end: 20120105
  4. MIRTAZAPINE [Concomitant]
     Dosage: 15 MG
     Route: 048
     Dates: end: 20120105
  5. ATROVENT [Suspect]
     Route: 055
     Dates: end: 20120105
  6. FLUTICASONE PROPIONATE/SALMETEROL [Suspect]
     Route: 055
     Dates: end: 20120105

REACTIONS (6)
  - CONFUSIONAL STATE [None]
  - RENAL FAILURE [None]
  - TACHYARRHYTHMIA [None]
  - DEATH [None]
  - CONVULSION [None]
  - POLYURIA [None]
